FAERS Safety Report 23418842 (Version 1)
Quarter: 2024Q1

REPORT INFORMATION
  Report Type: Spontaneous
  Country: US (occurrence: US)
  Receive Date: 20240118
  Receipt Date: 20240118
  Transmission Date: 20240409
  Serious: No
  Sender: FDA-Public Use
  Company Number: US-GENERICUS, INC.-2022GNR00014

PATIENT
  Sex: Female

DRUGS (1)
  1. TOBRAMYCIN [Suspect]
     Active Substance: TOBRAMYCIN
     Indication: Mycobacterial infection
     Dosage: 300 MG/5 ML, 2X/DAY X 28 DAYS ON THEN 28 DAYS OFF
     Dates: start: 20220506, end: 2022

REACTIONS (2)
  - Dyspnoea [Unknown]
  - Drug ineffective for unapproved indication [Recovered/Resolved]

NARRATIVE: CASE EVENT DATE: 20220101
